FAERS Safety Report 6814364-2 (Version None)
Quarter: 2010Q3

REPORT INFORMATION
  Report Type: 
  Country: None (occurrence: None)
  Receive Date: 20100702
  Receipt Date: 20100519
  Transmission Date: 20110219
  Serious: Yes (Death)
  Sender: FDA-Public Use
  Company Number: US-JNJCH-2007323772

PATIENT
  Age: 17 Year
  Sex: Female
  Weight: 50.3 kg

DRUGS (9)
  1. BEN-GAY ULTRA [Suspect]
     Indication: PRODUCT USED FOR UNKNOWN INDICATION
     Dosage: TEXT:AS DIRECTED
     Route: 061
  2. BENADRYL [Suspect]
     Dosage: TEXT:UNSPECIFIED
     Route: 048
  3. DRUG, UNSPECIFIED [Suspect]
     Indication: PRODUCT USED FOR UNKNOWN INDICATION
     Dosage: TEXT:UNSPECIFIED
     Route: 061
  4. BUPROPION HCL [Concomitant]
     Indication: PRODUCT USED FOR UNKNOWN INDICATION
     Dosage: TEXT:UNSPECIFIED
     Route: 065
  5. DESONIDE [Concomitant]
     Indication: ECZEMA
     Dosage: TEXT:0.05% UNSPECIFIED
     Route: 061
  6. FLUOCINOLONE ACETONIDE [Concomitant]
     Indication: PRODUCT USED FOR UNKNOWN INDICATION
     Dosage: TEXT:UNSPECIFIED
     Route: 065
  7. DERMA-SMOOTHE/FS [Concomitant]
     Indication: PRODUCT USED FOR UNKNOWN INDICATION
     Dosage: TEXT:UNSPECIFIED
     Route: 065
  8. OLUX [Concomitant]
     Indication: PRODUCT USED FOR UNKNOWN INDICATION
     Dosage: TEXT:UNSPECIFIED
     Route: 065
  9. OTHER DERMATOLOGICAL PREPARATIONS [Concomitant]
     Indication: PRODUCT USED FOR UNKNOWN INDICATION
     Dosage: TEXT:UNSPECIFIED
     Route: 065

REACTIONS (15)
  - ACCIDENTAL OVERDOSE [None]
  - ASTHMA [None]
  - BRAIN OEDEMA [None]
  - DRUG ADMINISTRATION ERROR [None]
  - DRUG TOXICITY [None]
  - DYSPNOEA [None]
  - EXCORIATION [None]
  - FATIGUE [None]
  - KERATITIS [None]
  - MUSCLE TIGHTNESS [None]
  - PRODUCT QUALITY ISSUE [None]
  - PULMONARY CONGESTION [None]
  - SKIN DISORDER [None]
  - SKIN ODOUR ABNORMAL [None]
  - THERAPEUTIC AGENT TOXICITY [None]
